FAERS Safety Report 8786383 (Version 1)
Quarter: 2012Q4

REPORT INFORMATION
  Report Type: 
  Country: US (occurrence: US)
  Receive Date: 20120914
  Receipt Date: 20120914
  Transmission Date: 20130627
  Serious: Yes (Other)
  Sender: FDA-Public Use
  Company Number: US-PFIZER INC-2012226163

PATIENT
  Age: 67 Year
  Sex: Male
  Weight: 79.37 kg

DRUGS (5)
  1. NEURONTIN [Suspect]
     Indication: NEUROPATHY PERIPHERAL
     Dosage: 600 mg (two capsules of 300mg), 1x/day
     Route: 048
     Dates: start: 2012
  2. NEURONTIN [Suspect]
     Dosage: UNK
     Route: 048
  3. NEURONTIN [Suspect]
     Dosage: 600 mg, 1x/day
     Route: 048
     Dates: end: 2012
  4. NEURONTIN [Suspect]
     Dosage: 600 mg, 3x/day
     Route: 048
     Dates: start: 2012
  5. ALLOPURINOL [Concomitant]
     Indication: GOUT
     Dosage: UNK

REACTIONS (4)
  - Dysstasia [Unknown]
  - Gait disturbance [Unknown]
  - Pain [Unknown]
  - Drug ineffective [Unknown]
